FAERS Safety Report 4728750-8 (Version None)
Quarter: 2005Q3

REPORT INFORMATION
  Report Type: 
  Country: None (occurrence: None)
  Receive Date: 20050729
  Receipt Date: 20050105
  Transmission Date: 20060218
  Serious: Yes (Death, Disabling)
  Sender: FDA-Public Use
  Company Number: ZW-GLAXOSMITHKLINE-B0364766A

PATIENT
  Age: 34 Year
  Sex: Female

DRUGS (6)
  1. COMBIVIR [Suspect]
     Indication: HIV INFECTION
     Dosage: 1TAB TWICE PER DAY
     Route: 048
     Dates: start: 20040506, end: 20041209
  2. TENOFOVIR [Suspect]
     Indication: HIV INFECTION
     Dosage: 300MG PER DAY
     Route: 048
     Dates: start: 20040723
  3. ISONIAZID [Concomitant]
  4. ETHAMBUTOL HCL [Concomitant]
  5. MORPHINE [Concomitant]
  6. NEVIRAPINE [Concomitant]
     Indication: HIV INFECTION
     Dates: start: 20040506, end: 20040723

REACTIONS (5)
  - ANAEMIA [None]
  - ASTHENIA [None]
  - CONFUSIONAL STATE [None]
  - DEATH [None]
  - FATIGUE [None]
